FAERS Safety Report 24568964 (Version 1)
Quarter: 2024Q4

REPORT INFORMATION
  Report Type: Spontaneous
  Country: US (occurrence: None)
  Receive Date: 20241030
  Receipt Date: 20241030
  Transmission Date: 20250115
  Serious: Yes (Death)
  Sender: Public
  Company Number: None

PATIENT
  Age: 75 Year
  Sex: Female
  Weight: 90.72 kg

DRUGS (11)
  1. OMNITROPE [Suspect]
     Active Substance: SOMATROPIN
     Indication: Hypopituitarism
     Dosage: FREQUENCY : DAILY;?
     Route: 058
     Dates: start: 20220612, end: 20241020
  2. BUPROFEN/FAMOTIDINE [Concomitant]
  3. SELEGILINE [Concomitant]
  4. ALBUTEROL [Concomitant]
  5. ASPIRIN [Concomitant]
  6. COMBIVENT RESPIMAT [Concomitant]
  7. KENALOG-10 [Concomitant]
  8. AMBIEN CR [Concomitant]
     Active Substance: ZOLPIDEM TARTRATE
  9. INVOKANA [Concomitant]
  10. JARDIANCE [Concomitant]
  11. LEVOTHYROXINE [Concomitant]

REACTIONS (1)
  - Death [None]

NARRATIVE: CASE EVENT DATE: 20241020
